FAERS Safety Report 6143446-6 (Version None)
Quarter: 2009Q2

REPORT INFORMATION
  Report Type: 
  Country: None (occurrence: None)
  Receive Date: 20090401
  Receipt Date: 20090320
  Transmission Date: 20091009
  Serious: Yes (Hospitalization)
  Sender: FDA-Public Use
  Company Number: 2009S1000103

PATIENT
  Age: 43 Year
  Sex: Female

DRUGS (1)
  1. CUBICIN [Suspect]
     Indication: CATHETER BACTERAEMIA
     Dosage: ; IV
     Route: 042
     Dates: start: 20090301

REACTIONS (6)
  - ABDOMINAL ABSCESS [None]
  - BACTERAEMIA [None]
  - BLOOD CREATINE PHOSPHOKINASE INCREASED [None]
  - KLEBSIELLA SEPSIS [None]
  - RENAL FAILURE [None]
  - THROMBOCYTOPENIA [None]
